FAERS Safety Report 12558264 (Version 1)
Quarter: 2016Q3

REPORT INFORMATION
  Report Type: Spontaneous
  Country: BR (occurrence: BR)
  Receive Date: 20160714
  Receipt Date: 20160714
  Transmission Date: 20161109
  Serious: Yes (Hospitalization)
  Sender: FDA-Public Use
  Company Number: BR-PFIZER INC-2016326748

PATIENT
  Age: 92 Year
  Sex: Female

DRUGS (5)
  1. ERANZ [Concomitant]
     Active Substance: DONEPEZIL HYDROCHLORIDE
     Indication: DEMENTIA ALZHEIMER^S TYPE
     Dosage: UNK
     Dates: start: 2010
  2. MENELAT [Concomitant]
     Active Substance: MIRTAZAPINE
     Dosage: UNK
  3. AMLODIPINE [Concomitant]
     Active Substance: AMLODIPINE BESYLATE
     Dosage: UNK, (STRENGTH 5 MG)
  4. VALSARTAN. [Concomitant]
     Active Substance: VALSARTAN
     Dosage: UNK, (STRENGTH 160 MG)
  5. EFFEXOR XR [Suspect]
     Active Substance: VENLAFAXINE HYDROCHLORIDE
     Indication: DEPRESSION
     Dosage: 75 MG 1X DAILY

REACTIONS (6)
  - Energy increased [Not Recovered/Not Resolved]
  - Intentional product misuse [Unknown]
  - Fall [Recovered/Resolved]
  - Pneumonia [Recovered/Resolved]
  - Drug dispensing error [Unknown]
  - Blood pressure abnormal [Recovered/Resolved]

NARRATIVE: CASE EVENT DATE: 20160104
